FAERS Safety Report 9848264 (Version 1)
Quarter: 2013Q4

REPORT INFORMATION
  Report Type: Spontaneous
  Country: US (occurrence: None)
  Receive Date: 20131223
  Receipt Date: 20131223
  Transmission Date: 20140711
  Serious: Yes (Other)
  Sender: FDA-Public Use
  Company Number: 1000051020

PATIENT
  Age: 61 Year
  Sex: Female

DRUGS (2)
  1. LINZESS [Suspect]
     Indication: CONSTIPATION
     Dosage: 145 MCG (145 MCG, 1 IN 1 D), ORAL
     Route: 048
     Dates: start: 201308, end: 201308
  2. VAGISAN (LACTIC ACID) (LACTIC ACID)? [Concomitant]

REACTIONS (4)
  - Diarrhoea [None]
  - Flatulence [None]
  - Abdominal pain [None]
  - Drug ineffective [None]
